FAERS Safety Report 5402969-5 (Version None)
Quarter: 2007Q3

REPORT INFORMATION
  Report Type: 
  Country: None (occurrence: None)
  Receive Date: 20070718
  Receipt Date: 20070508
  Transmission Date: 20080115
  Serious: Yes (Hospitalization, Other)
  Sender: FDA-Public Use
  Company Number: 2006116919

PATIENT
  Age: 50 Year
  Sex: Male
  Weight: 131.5 kg

DRUGS (6)
  1. CELEBREX [Suspect]
     Indication: ARTHRITIS
     Dosage: 400 MG (200 MG, 2 IN 1 D)
     Dates: start: 20020529, end: 20020801
  2. VIOXX [Suspect]
     Dates: start: 20010507, end: 20020327
  3. ADVIL [Concomitant]
  4. MOBIC [Concomitant]
  5. ULTRAM [Concomitant]
  6. NEXIUM [Concomitant]

REACTIONS (1)
  - MYOCARDIAL INFARCTION [None]
